FAERS Safety Report 8011723-X (Version None)
Quarter: 2011Q4

REPORT INFORMATION
  Report Type: 
  Country: None (occurrence: None)
  Receive Date: 20111228
  Receipt Date: 20111219
  Transmission Date: 20120403
  Serious: Yes (Hospitalization)
  Sender: FDA-Public Use
  Company Number: US-BAYER-2011-031168

PATIENT
  Age: 35 Year
  Sex: Female

DRUGS (9)
  1. YAZ [Suspect]
     Indication: POLYCYSTIC OVARIES
     Dosage: UNK
     Dates: start: 20080101, end: 20100101
  2. YAZ [Suspect]
     Indication: MENSTRUATION IRREGULAR
  3. DROSPIRENONE AND ETHINYL ESTRADIOL [Suspect]
     Indication: POLYCYSTIC OVARIES
     Dosage: UNK
     Dates: start: 20081101, end: 20090101
  4. DROSPIRENONE AND ETHINYL ESTRADIOL [Suspect]
     Indication: MENSTRUATION IRREGULAR
  5. YASMIN [Suspect]
     Indication: POLYCYSTIC OVARIES
     Dosage: UNK
     Dates: start: 20080301, end: 20081101
  6. YASMIN [Suspect]
     Indication: MENSTRUATION IRREGULAR
  7. METFORMIN HCL [Concomitant]
     Dosage: UNK
     Route: 048
     Dates: start: 19850101
  8. SPIRONOLACTONE [Concomitant]
     Dosage: UNK UNK, QD
     Route: 048
     Dates: start: 20050611
  9. SIMVASTATIN [Concomitant]
     Dosage: 20 MG, QD
     Route: 048
     Dates: start: 20081101

REACTIONS (6)
  - CHOLELITHIASIS [None]
  - INJURY [None]
  - PAIN [None]
  - ABDOMINAL PAIN UPPER [None]
  - CHOLECYSTITIS ACUTE [None]
  - GALLBLADDER DISORDER [None]
